FAERS Safety Report 8375016-3 (Version None)
Quarter: 2012Q2

REPORT INFORMATION
  Report Type: 
  Country: None (occurrence: None)
  Receive Date: 20120521
  Receipt Date: 20120515
  Transmission Date: 20120825
  Serious: No
  Sender: FDA-Public Use
  Company Number: US-ASTRAZENECA-2012SE30889

PATIENT
  Age: 85 Year
  Sex: Female

DRUGS (2)
  1. PRILOSEC [Suspect]
     Dosage: UNKNOWN
     Route: 048
  2. PRILOSEC OTC [Suspect]
     Route: 048

REACTIONS (1)
  - ADVERSE REACTION [None]
